FAERS Safety Report 8928615 (Version 1)
Quarter: 2012Q4

REPORT INFORMATION
  Report Type: 
  Country: US (occurrence: US)
  Receive Date: 20121127
  Receipt Date: 20121127
  Transmission Date: 20130627
  Serious: Yes (Other)
  Sender: FDA-Public Use
  Company Number: US-CELGENEUS-163-21880-12112620

PATIENT
  Sex: Male

DRUGS (1)
  1. REVLIMID [Suspect]
     Indication: MULTIPLE MYELOMA
     Dosage: 13.3929 Milligram
     Route: 048
     Dates: start: 200811

REACTIONS (3)
  - Cardiac disorder [Unknown]
  - Flatulence [Unknown]
  - Oedema peripheral [Unknown]
